FAERS Safety Report 12917088 (Version 1)
Quarter: 2016Q4

REPORT INFORMATION
  Report Type: Spontaneous
  Country: US (occurrence: US)
  Receive Date: 20161107
  Receipt Date: 20161107
  Transmission Date: 20170207
  Serious: No
  Sender: FDA-Public Use
  Company Number: PHEH2016US028290

PATIENT
  Age: 58 Year
  Sex: Male

DRUGS (2)
  1. AFINITOR [Suspect]
     Active Substance: EVEROLIMUS
     Indication: RENAL CELL CARCINOMA
     Dosage: 5 MG, QD (ONCE DAILY)
     Route: 048
     Dates: start: 20150912
  2. LENVATINIB [Suspect]
     Active Substance: LENVATINIB
     Indication: RENAL CELL CARCINOMA
     Dosage: 18 MG, QD (ONCE DAILY)
     Route: 048
     Dates: start: 20150912

REACTIONS (5)
  - Diarrhoea [Not Recovered/Not Resolved]
  - Fatigue [Not Recovered/Not Resolved]
  - Dermatitis acneiform [Not Recovered/Not Resolved]
  - Constipation [Not Recovered/Not Resolved]
  - Blood creatine increased [Not Recovered/Not Resolved]

NARRATIVE: CASE EVENT DATE: 20160927
